FAERS Safety Report 24916834 (Version 1)
Quarter: 2025Q1

REPORT INFORMATION
  Report Type: Spontaneous
  Country: CN (occurrence: CN)
  Receive Date: 20250203
  Receipt Date: 20250203
  Transmission Date: 20250409
  Serious: Yes (Other)
  Sender: AMGEN
  Company Number: CN-AMGEN-CHNSP2025020766

PATIENT

DRUGS (1)
  1. XGEVA [Suspect]
     Active Substance: DENOSUMAB
     Indication: Metastases to bone
     Route: 065

REACTIONS (8)
  - Periodontitis [Unknown]
  - Hypocalcaemia [Unknown]
  - Renal impairment [Unknown]
  - Osteonecrosis of jaw [Unknown]
  - Myalgia [Unknown]
  - Arthralgia [Unknown]
  - Injection site pain [Unknown]
  - Pyrexia [Unknown]
